FAERS Safety Report 13012564 (Version 1)
Quarter: 2016Q4

REPORT INFORMATION
  Report Type: Spontaneous
  Country: US (occurrence: US)
  Receive Date: 20161209
  Receipt Date: 20161209
  Transmission Date: 20170207
  Serious: Yes (Death)
  Sender: FDA-Public Use
  Company Number: US-ROCHE-1865755

PATIENT
  Age: 86 Year
  Sex: Female
  Weight: 64.92 kg

DRUGS (3)
  1. ACTIVASE [Suspect]
     Active Substance: ALTEPLASE
     Indication: CEREBROVASCULAR ACCIDENT
     Dosage: X1 DOSE
     Route: 042
     Dates: start: 20161019, end: 20161019
  2. LABETALOL [Concomitant]
     Active Substance: LABETALOL\LABETALOL HYDROCHLORIDE
     Indication: HYPERTENSION
     Dosage: X1 DOSE
     Route: 042
     Dates: start: 20161019, end: 20161019
  3. ACTIVASE [Suspect]
     Active Substance: ALTEPLASE
     Dosage: X1 DOSE
     Route: 042
     Dates: start: 20161019, end: 20161019

REACTIONS (1)
  - Haemorrhage intracranial [Fatal]

NARRATIVE: CASE EVENT DATE: 20161019
